FAERS Safety Report 5191088-1 (Version None)
Quarter: 2006Q4

REPORT INFORMATION
  Report Type: 
  Country: None (occurrence: None)
  Receive Date: 20061218
  Receipt Date: 20061218
  Transmission Date: 20070319
  Serious: Yes (Other)
  Sender: FDA-Public Use
  Company Number: None

PATIENT
  Age: 34 Year
  Sex: Female
  Weight: 60.782 kg

DRUGS (2)
  1. FLAGYL [Suspect]
     Indication: VAGINITIS BACTERIAL
     Dosage: 2 TIMES A DAY   PO
     Route: 048
     Dates: start: 20060801, end: 20060802
  2. DILANTIN [Suspect]

REACTIONS (3)
  - DRUG INTERACTION [None]
  - FEELING ABNORMAL [None]
  - PHARMACEUTICAL PRODUCT COMPLAINT [None]
